FAERS Safety Report 21796234 (Version 1)
Quarter: 2022Q4

REPORT INFORMATION
  Report Type: Spontaneous
  Country: US (occurrence: US)
  Receive Date: 20221229
  Receipt Date: 20221229
  Transmission Date: 20230113
  Serious: No
  Sender: FDA-Public Use
  Company Number: US-PAIPHARMA-2022-US-010660

PATIENT
  Age: 41 Year
  Sex: Male
  Weight: 61.24 kg

DRUGS (1)
  1. VALPROIC ACID [Suspect]
     Active Substance: VALPROIC ACID
     Indication: Seizure prophylaxis
     Dosage: 0.9ML QAM, 7.5 QPM, 10ML, QHS
     Route: 048
     Dates: start: 198201

REACTIONS (2)
  - Cough [Not Recovered/Not Resolved]
  - Oesophageal irritation [Not Recovered/Not Resolved]

NARRATIVE: CASE EVENT DATE: 20200401
